FAERS Safety Report 23464010 (Version 6)
Quarter: 2024Q4

REPORT INFORMATION
  Report Type: Spontaneous
  Country: US (occurrence: US)
  Receive Date: 20240201
  Receipt Date: 20241118
  Transmission Date: 20250115
  Serious: Yes (Hospitalization, Other)
  Sender: GLAXOSMITHKLINE
  Company Number: US-GSKCCFUS-Case-01908489_AE-106351

PATIENT

DRUGS (6)
  1. BENLYSTA [Suspect]
     Active Substance: BELIMUMAB
     Indication: Product used for unknown indication
     Dosage: UNK
     Route: 058
  2. BENLYSTA [Suspect]
     Active Substance: BELIMUMAB
     Indication: Product used for unknown indication
     Dosage: UNK
     Route: 042
     Dates: start: 202409
  3. MOUNJARO [Suspect]
     Active Substance: TIRZEPATIDE
     Indication: Product used for unknown indication
     Dosage: UNK
  4. HYDROXYCHLOROQUINE [Concomitant]
     Active Substance: HYDROXYCHLOROQUINE
     Indication: Product used for unknown indication
     Dosage: UNK
  5. PREDNISONE [Concomitant]
     Active Substance: PREDNISONE
     Indication: Product used for unknown indication
     Dosage: UNK
  6. NITROGLYCERIN [Concomitant]
     Active Substance: NITROGLYCERIN
     Indication: Chest pain
     Dosage: UNK

REACTIONS (37)
  - Impaired gastric emptying [Unknown]
  - Gastritis [Unknown]
  - Blood pressure increased [Unknown]
  - Blood glucose increased [Unknown]
  - Feeling abnormal [Unknown]
  - Blood magnesium decreased [Unknown]
  - Paraesthesia [Unknown]
  - Dehydration [Unknown]
  - Contusion [Unknown]
  - Sepsis [Unknown]
  - Swollen tongue [Recovering/Resolving]
  - Blood potassium decreased [Recovered/Resolved]
  - Streptococcal infection [Not Recovered/Not Resolved]
  - Injection site nodule [Unknown]
  - Tongue erythema [Not Recovered/Not Resolved]
  - Injection site pruritus [Unknown]
  - Injection site bruising [Unknown]
  - Oral pain [Unknown]
  - Oropharyngeal pain [Unknown]
  - Urinary tract infection [Unknown]
  - Glossodynia [Unknown]
  - Mouth ulceration [Unknown]
  - Gastrointestinal motility disorder [Unknown]
  - Staphylococcal infection [Unknown]
  - Injection site pain [Unknown]
  - Back pain [Unknown]
  - Pruritus [Unknown]
  - Erythema [Unknown]
  - Swelling [Unknown]
  - Headache [Unknown]
  - Vision blurred [Unknown]
  - Nausea [Unknown]
  - Vomiting [Unknown]
  - Diarrhoea [Unknown]
  - Migraine [Unknown]
  - Dyspnoea [Unknown]
  - Carbon dioxide decreased [Unknown]

NARRATIVE: CASE EVENT DATE: 20240104
